FAERS Safety Report 12834500 (Version 1)
Quarter: 2016Q4

REPORT INFORMATION
  Report Type: Spontaneous
  Country: US (occurrence: US)
  Receive Date: 20161010
  Receipt Date: 20161010
  Transmission Date: 20170207
  Serious: Yes (Other)
  Sender: FDA-Public Use
  Company Number: US-PFIZER INC-2016462626

PATIENT
  Age: 8 Month
  Sex: Male
  Weight: 13.3 kg

DRUGS (2)
  1. FENTANYL CITRATE. [Suspect]
     Active Substance: FENTANYL CITRATE
     Dosage: 3370 UG, DAILY
  2. MIDAZOLAM [Suspect]
     Active Substance: MIDAZOLAM\MIDAZOLAM HYDROCHLORIDE
     Dosage: 270 MG, DAILY

REACTIONS (5)
  - Drug withdrawal syndrome neonatal [Unknown]
  - Agitation [Unknown]
  - Tachycardia [Unknown]
  - Drug dependence [Unknown]
  - Hypertension [Unknown]
